FAERS Safety Report 24214268 (Version 1)
Quarter: 2024Q3

REPORT INFORMATION
  Report Type: Spontaneous
  Country: FR (occurrence: FR)
  Receive Date: 20240815
  Receipt Date: 20240815
  Transmission Date: 20241017
  Serious: Yes (Life-Threatening, Hospitalization, Other)
  Sender: DR REDDYS
  Company Number: None

PATIENT
  Age: 55 Year
  Sex: Male

DRUGS (25)
  1. CYCLOPHOSPHAMIDE [Suspect]
     Active Substance: CYCLOPHOSPHAMIDE
     Indication: Diffuse large B-cell lymphoma
     Dosage: 1 COURSE
     Dates: start: 20221227
  2. DAPTOMYCIN [Suspect]
     Active Substance: DAPTOMYCIN
     Indication: Bacterial infection
     Dosage: START DATE: 11-FEB-2023
     Route: 042
     Dates: start: 202302, end: 20230306
  3. NALOXEGOL OXALATE [Suspect]
     Active Substance: NALOXEGOL OXALATE
     Indication: Constipation
     Dosage: IF REQUIRED?25 MILLIGRAM, PRN (IF NECESSARY)?START DATE: 11-FEB-2023
     Route: 048
     Dates: start: 202302
  4. CILASTATIN SODIUM\IMIPENEM [Suspect]
     Active Substance: CILASTATIN SODIUM\IMIPENEM
     Indication: Bacterial infection
     Dosage: 1 INJECTION (800 MG) PER DAY?1 INJECTION 800 MILLIGRAM, QD, 500MG/500MG
     Route: 042
     Dates: start: 20230114, end: 20230208
  5. DOXORUBICIN [Suspect]
     Active Substance: DOXORUBICIN
     Indication: Diffuse large B-cell lymphoma
     Dosage: 1 TREATMENT
     Dates: start: 20221227
  6. BACTRIM [Suspect]
     Active Substance: SULFAMETHOXAZOLE\TRIMETHOPRIM
     Indication: Bacterial infection
     Dosage: 400 MILLIGRAM, QD (1 DF, 1 TAB IN THE MORNING)
     Route: 048
     Dates: start: 20230106, end: 20230303
  7. LOVENOX [Suspect]
     Active Substance: ENOXAPARIN SODIUM
     Indication: Prophylaxis
     Dosage: START DATE: 10-FEB-2023?4000 INTERNATIONAL UNIT
     Route: 058
     Dates: start: 202302
  8. LOVENOX [Suspect]
     Active Substance: ENOXAPARIN SODIUM
     Indication: Constipation
  9. MORPHINE [Suspect]
     Active Substance: MORPHINE
     Indication: Pain
     Dosage: 30 MG, BID (1 TAB SKENAN LP30MG EVERY 12 HOURS)??START DATE: 10-FEB-2023
     Route: 048
     Dates: start: 202302, end: 20230218
  10. CASPOFUNGIN ACETATE [Suspect]
     Active Substance: CASPOFUNGIN ACETATE
     Indication: Fungal infection
     Dosage: INJECTION
     Route: 042
     Dates: start: 20230126
  11. METRONIDAZOLE [Suspect]
     Active Substance: METRONIDAZOLE
     Indication: Bacterial infection
     Dosage: 500 MG MORNING, NOON AND EVENING?START DATE: 09-FEB-2023
     Route: 048
     Dates: start: 202302, end: 20230303
  12. RITUXIMAB [Suspect]
     Active Substance: RITUXIMAB
     Indication: Diffuse large B-cell lymphoma
     Dosage: 1 COURSE
     Dates: start: 20221227
  13. ACETAMINOPHEN [Suspect]
     Active Substance: ACETAMINOPHEN
     Indication: Pain
     Dosage: 1 TABLET EVERY 6 HOURS, MAXIMUM 3 TABLETS/D? START DATE: -11-FEB-2023?1 DF, Q6H (1 TABLET Q6H, MAXIM
     Route: 048
     Dates: start: 202302
  14. CIPROFLOXACIN [Suspect]
     Active Substance: CIPROFLOXACIN
     Indication: Bacterial infection
     Dosage: START DATE: 03-FEB-2023
     Dates: start: 202302, end: 20230208
  15. VINCRISTINE SULFATE [Suspect]
     Active Substance: VINCRISTINE SULFATE
     Indication: Diffuse large B-cell lymphoma
     Dosage: 1 TREATMENT
     Dates: start: 20221227
  16. VALACYCLOVIR HYDROCHLORIDE [Suspect]
     Active Substance: VALACYCLOVIR HYDROCHLORIDE
     Indication: Bacterial infection
     Dosage: 1000 MILLIGRAM, QD, 500MG MORNING AND EVENING
     Route: 048
     Dates: start: 20230106
  17. AMITRIPTYLINE HYDROCHLORIDE [Suspect]
     Active Substance: AMITRIPTYLINE HYDROCHLORIDE
     Indication: Pain
     Dosage: 1/12 MILLILITER PER DAY 35 GTT DROPS,?5 DROPS IN THE MORNING AND 10 DROPS AT NOON AND IN THE EVENING
     Route: 048
     Dates: start: 20221210
  18. LEUCOVORIN CALCIUM [Suspect]
     Active Substance: LEUCOVORIN CALCIUM
     Indication: Prophylaxis
     Dosage: 2 DF, 0.5 WEEK (A TAB EVERY MONDAY AND THURSDAY)
     Route: 048
     Dates: start: 20230102
  19. ACUPAN [Suspect]
     Active Substance: NEFOPAM HYDROCHLORIDE
     Indication: Pain
     Dosage: ONE AMPOULE EVERY 4 HOURS IF PAIN?SOLUTION INJECTABLE
     Route: 048
     Dates: start: 20230106, end: 20230302
  20. ARANESP [Suspect]
     Active Substance: DARBEPOETIN ALFA
     Indication: Anaemia
     Dosage: 1 ADMINISTRATION PER WEEK?1 ADMINISTRATION PER WEEK?START DATE: 13-FEB-2023
     Route: 058
     Dates: start: 202302
  21. ARANESP [Suspect]
     Active Substance: DARBEPOETIN ALFA
     Dosage: 1 ADMINISTRATION PER WEEK?1 ADMINISTRATION PER WEEK
     Route: 058
     Dates: start: 20230213
  22. CEFTRIAXONE [Suspect]
     Active Substance: CEFTRIAXONE\CEFTRIAXONE SODIUM
     Indication: Bacterial infection
     Dosage: 2 GRAM,QD ?1 G MORNING AND EVENING?START DATE: 09-FEB-2023
     Route: 048
     Dates: start: 202302
  23. PANTOPRAZOLE [Suspect]
     Active Substance: PANTOPRAZOLE
     Indication: Gastritis prophylaxis
     Dosage: 20 MILLIGRAM
     Route: 048
     Dates: start: 20230106
  24. PANTOPRAZOLE [Suspect]
     Active Substance: PANTOPRAZOLE
     Indication: Constipation
  25. ALPRAZOLAM [Suspect]
     Active Substance: ALPRAZOLAM
     Indication: Anxiety
     Dosage: 1 CP 0.25MG IF ANXIETY?1TAB 0.25MG IF ANGUISH
     Route: 048
     Dates: start: 20230106, end: 20230209

REACTIONS (1)
  - Agranulocytosis [Recovered/Resolved]

NARRATIVE: CASE EVENT DATE: 20230201
